FAERS Safety Report 5926898-3 (Version None)
Quarter: 2008Q4

REPORT INFORMATION
  Report Type: 
  Country: None (occurrence: None)
  Receive Date: 20081022
  Receipt Date: 20081015
  Transmission Date: 20090506
  Serious: Yes (Other)
  Sender: FDA-Public Use
  Company Number: US-GILEAD-2008-0018567

PATIENT
  Sex: Female

DRUGS (8)
  1. LETAIRIS [Suspect]
     Indication: PULMONARY ARTERIAL HYPERTENSION
     Route: 048
     Dates: start: 20080712, end: 20081008
  2. REVATIO [Concomitant]
  3. COUMADIN [Concomitant]
  4. OXYGEN [Concomitant]
     Route: 055
  5. LISPRO INSULIN [Concomitant]
  6. LANTUS [Concomitant]
  7. DIGOXIN [Concomitant]
  8. SYNTHROID [Concomitant]

REACTIONS (1)
  - PREGNANCY [None]
